FAERS Safety Report 13664432 (Version 4)
Quarter: 2018Q4

REPORT INFORMATION
  Report Type: Spontaneous
  Country: US (occurrence: US)
  Receive Date: 20170619
  Receipt Date: 20181129
  Transmission Date: 20190204
  Serious: No
  Sender: FDA-Public Use
  Company Number: US-PFIZER INC-2017266365

PATIENT
  Age: 55 Year
  Sex: Female
  Weight: 48 kg

DRUGS (13)
  1. DOCETAXEL. [Suspect]
     Active Substance: DOCETAXEL
     Indication: BREAST CANCER
     Dosage: 110 MG (75 MGLM), EVERY 3 WEEKS (4 CYCLES)
     Dates: start: 20110916, end: 20111111
  2. PROTONIX [PANTOPRAZOLE SODIUM SESQUIHYDRATE] [Concomitant]
     Dosage: UNK
  3. IBUPROFEN. [Concomitant]
     Active Substance: IBUPROFEN
     Dosage: UNK
  4. ASPIRIN. [Concomitant]
     Active Substance: ASPIRIN
     Dosage: UNK
  5. ZOFRAN [ONDANSETRON] [Concomitant]
     Dosage: UNK
  6. DOCETAXEL. [Suspect]
     Active Substance: DOCETAXEL
     Indication: BREAST CANCER
     Dosage: 110 MG (75 MGLM), EVERY 3 WEEKS (FOUR CYCLES)
     Dates: start: 20110916, end: 20111111
  7. TAXOTERE [Suspect]
     Active Substance: DOCETAXEL
     Indication: BREAST CANCER
     Dosage: 110 MG (75 MGLM), EVERY 3 WEEKS (4 CYCLES)
     Dates: start: 20110916, end: 20111111
  8. CYTOXAN [Concomitant]
     Active Substance: CYCLOPHOSPHAMIDE
     Dosage: UNK
  9. DOCEFREZ [Suspect]
     Active Substance: DOCETAXEL ANHYDROUS
     Indication: BREAST CANCER
     Dosage: 110 MG (75 MGLM), EVERY 3 WEEKS (4 CYCLES)
     Dates: start: 20110916, end: 20111111
  10. DOCETAXEL. [Suspect]
     Active Substance: DOCETAXEL
     Indication: BREAST CANCER
     Dosage: 110 MG (75 MGLM), EVERY 3 WEEKS (4 CYCLES)
     Dates: start: 20110916, end: 20111111
  11. NEOSAR [Concomitant]
     Active Substance: CYCLOPHOSPHAMIDE
     Dosage: UNK
  12. DEXAMETHASONE. [Concomitant]
     Active Substance: DEXAMETHASONE
     Dosage: UNK
  13. LORAZEPAM. [Concomitant]
     Active Substance: LORAZEPAM
     Dosage: UNK

REACTIONS (5)
  - Madarosis [Not Recovered/Not Resolved]
  - Alopecia [Not Recovered/Not Resolved]
  - Hair texture abnormal [Not Recovered/Not Resolved]
  - Hair disorder [Not Recovered/Not Resolved]
  - Hair colour changes [Not Recovered/Not Resolved]
